FAERS Safety Report 6439026-5 (Version None)
Quarter: 2009Q4

REPORT INFORMATION
  Report Type: 
  Country: None (occurrence: None)
  Receive Date: 20091113
  Receipt Date: 20091105
  Transmission Date: 20100525
  Serious: Yes (Other)
  Sender: FDA-Public Use
  Company Number: US-ROCHE-667621

PATIENT
  Sex: Female
  Weight: 113.4 kg

DRUGS (1)
  1. BONIVA [Suspect]
     Indication: OSTEOPOROSIS
     Route: 048
     Dates: start: 20070101, end: 20080701

REACTIONS (3)
  - FALL [None]
  - OSTEONECROSIS [None]
  - UPPER LIMB FRACTURE [None]
